FAERS Safety Report 8566878 (Version 5)
Quarter: 2013Q2

REPORT INFORMATION
  Report Type: Spontaneous
  Country: US (occurrence: US)
  Receive Date: 20120517
  Receipt Date: 20130501
  Transmission Date: 20140414
  Serious: Yes (Death, Hospitalization)
  Sender: FDA-Public Use
  Company Number: US-B.I. PHARMACEUTICALS,INC./RIDGEFIELD-2012-BP-10811BP

PATIENT
  Age: 83 Year
  Sex: Male
  Weight: 74.84 kg

DRUGS (11)
  1. PRADAXA [Suspect]
     Indication: ANTICOAGULANT THERAPY
     Dosage: 300 MG
     Route: 048
     Dates: start: 20110319, end: 20110514
  2. PRADAXA [Suspect]
     Indication: CARDIAC DISORDER
  3. AMLODIPINE [Concomitant]
     Dates: start: 201101, end: 201104
  4. ENALAPRIL [Concomitant]
     Dates: start: 201101, end: 201105
  5. HYDROCORTISONE [Concomitant]
     Dates: start: 201101, end: 201105
  6. MULTAQ [Concomitant]
     Dates: start: 201103, end: 201105
  7. KLOR-CON [Concomitant]
     Dates: start: 201104
  8. FUROSEMIDE [Concomitant]
     Dates: start: 201104
  9. ASPIRIN [Concomitant]
     Indication: CARDIAC DISORDER
     Dosage: 81 MG
  10. SYNTHROID [Concomitant]
  11. VASOTEC [Concomitant]

REACTIONS (1)
  - Gastrointestinal haemorrhage [Fatal]
